FAERS Safety Report 4941673-4 (Version None)
Quarter: 2006Q1

REPORT INFORMATION
  Report Type: 
  Country: None (occurrence: None)
  Receive Date: 20060308
  Receipt Date: 20060224
  Transmission Date: 20060701
  Serious: Yes (Hospitalization, Other)
  Sender: FDA-Public Use
  Company Number: 2006028672

PATIENT
  Age: 83 Year
  Sex: Male

DRUGS (10)
  1. LIPITOR [Suspect]
     Indication: HYPERCHOLESTEROLAEMIA
     Dosage: 80 MG, 1 IN 1 D, ORAL
     Route: 048
     Dates: start: 20041104, end: 20050806
  2. ASPIRIN [Concomitant]
  3. ALL OTHER THERAPEUTIC PRODUCTS (ALL OTHER THERAPEUTIC PRODUCTS) [Concomitant]
  4. FUROSEMIDE [Concomitant]
  5. RAMIPRIL [Concomitant]
  6. PERHEXILINE (PERHEXILINE) [Concomitant]
  7. INSULIN (INSULIN) [Concomitant]
  8. METOPROLOL (METOPROLOL) [Concomitant]
  9. GLICLAZIDE (GLICLAZIDE) [Concomitant]
  10. GEMFIBROZIL [Concomitant]

REACTIONS (9)
  - ACUTE MYOCARDIAL INFARCTION [None]
  - ALANINE AMINOTRANSFERASE INCREASED [None]
  - ANAEMIA [None]
  - ANGINA UNSTABLE [None]
  - BLOOD CREATINE PHOSPHOKINASE INCREASED [None]
  - DIFFICULTY IN WALKING [None]
  - LEFT VENTRICULAR FAILURE [None]
  - PAIN [None]
  - RENAL IMPAIRMENT [None]
